FAERS Safety Report 7975927-4 (Version None)
Quarter: 2011Q4

REPORT INFORMATION
  Report Type: 
  Country: None (occurrence: None)
  Receive Date: 20111213
  Receipt Date: 20111007
  Transmission Date: 20120403
  Serious: No
  Sender: FDA-Public Use
  Company Number: US-AMGEN-USASP2011050589

PATIENT
  Age: 63 Year
  Sex: Female
  Weight: 71.202 kg

DRUGS (8)
  1. LOVAZA [Concomitant]
  2. METHOTREXATE [Concomitant]
  3. FLEXERIL [Concomitant]
  4. ENBREL [Suspect]
     Indication: RHEUMATOID ARTHRITIS
     Dosage: 50 MG, QWK
     Dates: start: 20100310
  5. MELOXICAM [Concomitant]
  6. BACLOFEN [Concomitant]
  7. LEVOXYL [Concomitant]
  8. SIMVASTATIN [Concomitant]

REACTIONS (2)
  - WHEEZING [None]
  - COUGH [None]
